FAERS Safety Report 22340454 (Version 1)
Quarter: 2023Q2

REPORT INFORMATION
  Report Type: Report from Study
  Country: US (occurrence: US)
  Receive Date: 20230518
  Receipt Date: 20230518
  Transmission Date: 20230722
  Serious: Yes (Other)
  Sender: FDA-Public Use
  Company Number: US-JAZZ-2021-US-017848

PATIENT
  Age: 52 Year
  Sex: Female

DRUGS (29)
  1. XYREM [Suspect]
     Active Substance: SODIUM OXYBATE
     Indication: Insomnia
     Dosage: 2.25 GRAM, BID
     Route: 048
     Dates: start: 201008, end: 201009
  2. XYREM [Suspect]
     Active Substance: SODIUM OXYBATE
     Dosage: DOSE ADJUSTMENT
     Route: 048
     Dates: start: 201009, end: 201011
  3. XYREM [Suspect]
     Active Substance: SODIUM OXYBATE
     Dosage: 4.5 GRAM, FIRST DOSE
     Route: 048
     Dates: start: 201011, end: 201102
  4. XYREM [Suspect]
     Active Substance: SODIUM OXYBATE
     Dosage: 7.25 GRAM, SECOND DOSE
     Route: 048
     Dates: start: 201011, end: 201102
  5. XYREM [Suspect]
     Active Substance: SODIUM OXYBATE
     Dosage: 4.5 GRAM, FIRST DOSE
     Route: 048
     Dates: start: 201208, end: 201308
  6. XYREM [Suspect]
     Active Substance: SODIUM OXYBATE
     Dosage: 7.25 GRAM, SECOND DOSE
     Route: 048
     Dates: start: 201208, end: 201308
  7. XYREM [Suspect]
     Active Substance: SODIUM OXYBATE
     Dosage: DOSE ADJUSTMENT
     Route: 048
     Dates: start: 201308, end: 201501
  8. XYREM [Suspect]
     Active Substance: SODIUM OXYBATE
     Dosage: 2.75 GRAM, FIRST DOSE
     Route: 048
     Dates: start: 201501, end: 201502
  9. XYREM [Suspect]
     Active Substance: SODIUM OXYBATE
     Dosage: 4.5 GRAM, SECOND DOSE
     Route: 048
     Dates: start: 201501, end: 201502
  10. XYREM [Suspect]
     Active Substance: SODIUM OXYBATE
     Dosage: 2.75 GRAM, FIRST DOSE
     Route: 048
     Dates: start: 201602, end: 201602
  11. XYREM [Suspect]
     Active Substance: SODIUM OXYBATE
     Dosage: 4.5GRAM, SECOND DOSE
     Route: 048
     Dates: start: 201602, end: 201602
  12. XYREM [Suspect]
     Active Substance: SODIUM OXYBATE
     Dosage: DOSE ADJUSTMENT
     Route: 048
     Dates: start: 201602, end: 202109
  13. XYREM [Suspect]
     Active Substance: SODIUM OXYBATE
     Dosage: 2.75 GRAM, FIRST DOSE
     Route: 048
     Dates: start: 202109
  14. XYREM [Suspect]
     Active Substance: SODIUM OXYBATE
     Dosage: 4.5 GRAM, SECOND DOSE
     Route: 048
     Dates: start: 202109
  15. AMBIEN [Suspect]
     Active Substance: ZOLPIDEM TARTRATE
     Indication: Product used for unknown indication
  16. CHLORPROMAZINE [Suspect]
     Active Substance: CHLORPROMAZINE
     Indication: Product used for unknown indication
     Dosage: UNK
     Dates: start: 20230505
  17. CHLORPROMAZINE [Suspect]
     Active Substance: CHLORPROMAZINE
     Dosage: UNK
     Dates: start: 20230511
  18. VIIBRYD [Concomitant]
     Active Substance: VILAZODONE HYDROCHLORIDE
     Dosage: UNK
     Dates: start: 20140527
  19. VIIBRYD [Concomitant]
     Active Substance: VILAZODONE HYDROCHLORIDE
     Dosage: UNK
     Dates: start: 20230501
  20. TRIAMCINOLONE [Concomitant]
     Active Substance: TRIAMCINOLONE
     Dosage: UNK
     Dates: start: 20190227
  21. UBRELVY [Concomitant]
     Active Substance: UBROGEPANT
     Dosage: UNK
     Dates: start: 20200304
  22. AZELASTINE HYDROCHLORIDE [Concomitant]
     Active Substance: AZELASTINE HYDROCHLORIDE
     Dosage: UNK
     Dates: start: 20220102
  23. QELBREE [Concomitant]
     Active Substance: VILOXAZINE HYDROCHLORIDE
     Dosage: UNK
     Dates: start: 20220601
  24. ADDERALL [Concomitant]
     Active Substance: AMPHETAMINE ASPARTATE\AMPHETAMINE SULFATE\DEXTROAMPHETAMINE SACCHARATE\DEXTROAMPHETAMINE SULFATE
     Dosage: UNK
     Dates: start: 20220807
  25. CHLORDIAZEPOXIDE [Concomitant]
     Active Substance: CHLORDIAZEPOXIDE
     Dosage: UNK
     Dates: start: 20230301
  26. CROMOLYN [Concomitant]
     Active Substance: CROMOLYN
     Dosage: UNK
     Dates: start: 20230201
  27. MIRALAX [Concomitant]
     Active Substance: POLYETHYLENE GLYCOL 3350
     Dosage: UNK
     Dates: start: 20230401
  28. RYALTRIS [Concomitant]
     Active Substance: MOMETASONE FUROATE MONOHYDRATE\OLOPATADINE HYDROCHLORIDE
     Dosage: 665-25 MCG
     Dates: start: 20230301
  29. IPRATROPIUM [Concomitant]
     Active Substance: IPRATROPIUM
     Dosage: UNK
     Dates: start: 20230201

REACTIONS (17)
  - Hypothyroidism [Unknown]
  - CREST syndrome [Unknown]
  - Rosacea [Unknown]
  - Underweight [Recovering/Resolving]
  - Oxygen saturation increased [Unknown]
  - Dental implantation [Unknown]
  - Attention deficit hyperactivity disorder [Unknown]
  - Dry eye [Unknown]
  - Hypertonic bladder [Unknown]
  - Constipation [Unknown]
  - Rash [Unknown]
  - Drug interaction [Unknown]
  - Nausea [Unknown]
  - Snoring [Unknown]
  - Nasal septum deviation [Unknown]
  - Drug intolerance [Unknown]
  - Dizziness [Unknown]

NARRATIVE: CASE EVENT DATE: 20221101
